FAERS Safety Report 5159363-4 (Version None)
Quarter: 2006Q4

REPORT INFORMATION
  Report Type: 
  Country: None (occurrence: None)
  Receive Date: 20061120
  Receipt Date: 20061024
  Transmission Date: 20070319
  Serious: Yes (Death)
  Sender: FDA-Public Use
  Company Number: KADN20060045

PATIENT
  Age: 61 Year
  Sex: Female
  Weight: 153.3158 kg

DRUGS (12)
  1. KADIAN [Suspect]
     Indication: NEURALGIA
     Dosage: 100 MG BID PO
     Route: 048
     Dates: end: 20060926
  2. KADIAN [Suspect]
     Indication: NEURALGIA
     Dosage: ORAL
     Route: 048
     Dates: start: 20060911
  3. LANTUS [Concomitant]
  4. ACTOS [Concomitant]
  5. ASPIRIN [Concomitant]
  6. GLUCOTROL XL [Concomitant]
  7. HUMALOG [Concomitant]
  8. TRICOR [Concomitant]
  9. PRILOSEC [Concomitant]
  10. LYRICA [Concomitant]
  11. LIPITOR [Concomitant]
  12. HYDROCHLOROTHIAZIDE [Concomitant]

REACTIONS (3)
  - CEREBROVASCULAR ACCIDENT [None]
  - RESPIRATORY FAILURE [None]
  - SOMNOLENCE [None]
